FAERS Safety Report 7905348-1 (Version None)
Quarter: 2011Q4

REPORT INFORMATION
  Report Type: 
  Country: None (occurrence: None)
  Receive Date: 20111109
  Receipt Date: 20111102
  Transmission Date: 20120403
  Serious: Yes (Other)
  Sender: FDA-Public Use
  Company Number: GB-B.I. PHARMACEUTICALS,INC./RIDGEFIELD-2011-UK-01199UK

PATIENT

DRUGS (2)
  1. VIRAMUNE [Suspect]
     Dosage: 200 MG
  2. VIRAMUNE [Suspect]
     Dosage: 400 MG

REACTIONS (3)
  - ACCIDENTAL OVERDOSE [None]
  - RASH [None]
  - LIVER DISORDER [None]
